FAERS Safety Report 9703297 (Version 1)
Quarter: 2013Q4

REPORT INFORMATION
  Report Type: Spontaneous
  Country: BR (occurrence: BR)
  Receive Date: 20131122
  Receipt Date: 20131122
  Transmission Date: 20140711
  Serious: Yes (Other)
  Sender: FDA-Public Use
  Company Number: BR-ACCORD-020382

PATIENT
  Age: 36 Year
  Sex: Female
  Weight: 83.5 kg

DRUGS (5)
  1. DEXAMETHASONE [Concomitant]
     Route: 042
     Dates: start: 20131029, end: 20131029
  2. NAUSETRON [Concomitant]
     Route: 042
     Dates: start: 20131029, end: 20131029
  3. PACLITAXEL [Suspect]
     Indication: CHEMOTHERAPY
     Route: 042
     Dates: start: 20131029, end: 20131029
  4. RANITIDINE [Concomitant]
     Route: 042
     Dates: start: 20131029, end: 20131029
  5. DIFENIDRIN [Concomitant]
     Route: 042
     Dates: start: 20131029, end: 20131029

REACTIONS (2)
  - Paraesthesia oral [Recovered/Resolved]
  - Malaise [Recovered/Resolved]
